FAERS Safety Report 4308407-8 (Version None)
Quarter: 2004Q1

REPORT INFORMATION
  Report Type: 
  Country: None (occurrence: None)
  Receive Date: 20040301
  Receipt Date: 20040202
  Transmission Date: 20041129
  Serious: Yes (Death, Life-Threatening)
  Sender: FDA-Public Use
  Company Number: WAES 0402USA00881

PATIENT
  Age: 0 Day
  Sex: Female
  Weight: 1 kg

DRUGS (2)
  1. DICLOFENAC SODIUM [Suspect]
     Indication: PYREXIA
  2. INDOCIN [Suspect]
     Indication: UTERINE HYPERTONUS

REACTIONS (6)
  - GASTROINTESTINAL PERFORATION [None]
  - MATERNAL DRUGS AFFECTING FOETUS [None]
  - NEONATAL DISORDER [None]
  - NEONATAL RESPIRATORY DISTRESS SYNDROME [None]
  - PATENT DUCTUS ARTERIOSUS [None]
  - PREMATURE BABY [None]
